FAERS Safety Report 6251255-2 (Version None)
Quarter: 2009Q2

REPORT INFORMATION
  Report Type: 
  Country: None (occurrence: None)
  Receive Date: 20090630
  Receipt Date: 20090624
  Transmission Date: 20091009
  Serious: Yes (Hospitalization)
  Sender: FDA-Public Use
  Company Number: US-RB-017383-09

PATIENT
  Age: 21 Year
  Sex: Female

DRUGS (5)
  1. SUBOXONE [Suspect]
     Dosage: VARYING DOSE UP TO 12 MG DAILY
     Route: 060
     Dates: start: 20090401, end: 20090620
  2. LEXAPRO [Suspect]
     Indication: DEPRESSION
     Dosage: UNKNOWN DOSE
     Route: 065
     Dates: end: 20090623
  3. LEXAPRO [Suspect]
     Indication: ANXIETY
     Dosage: UNKNOWN DOSE
     Route: 065
     Dates: end: 20090623
  4. SEROQUEL [Suspect]
     Indication: DEPRESSION
     Dosage: UNKNOWN
     Route: 065
     Dates: end: 20090623
  5. SEROQUEL [Suspect]
     Indication: ANXIETY
     Dosage: UNKNOWN
     Route: 065
     Dates: end: 20090623

REACTIONS (1)
  - MOOD SWINGS [None]
